FAERS Safety Report 4487562-3 (Version None)
Quarter: 2004Q4

REPORT INFORMATION
  Report Type: 
  Country: None (occurrence: None)
  Receive Date: 20041028
  Receipt Date: 20041018
  Transmission Date: 20050328
  Serious: Yes (Death)
  Sender: FDA-Public Use
  Company Number: US-JNJFOC-20041005751

PATIENT
  Sex: Male
  Weight: 64.3 kg

DRUGS (4)
  1. REMICADE [Suspect]
     Indication: CROHN'S DISEASE
     Dosage: SEVERAL YEARS.
     Route: 042
  2. IMURAN [Concomitant]
  3. PREDNISONE [Concomitant]
  4. 6-MP [Concomitant]

REACTIONS (3)
  - CORD BLOOD TRANSPLANT THERAPY [None]
  - DRUG RESISTANCE [None]
  - LYMPHOMA [None]
